FAERS Safety Report 6822775-4 (Version None)
Quarter: 2010Q3

REPORT INFORMATION
  Report Type: 
  Country: None (occurrence: None)
  Receive Date: 20100708
  Receipt Date: 20100703
  Transmission Date: 20110219
  Serious: Yes (Death)
  Sender: FDA-Public Use
  Company Number: CO-ROCHE-713142

PATIENT
  Sex: Female

DRUGS (2)
  1. AVASTIN [Suspect]
     Indication: COLORECTAL CANCER
     Dosage: FREQUENCY:Q21DAYS
     Route: 042
     Dates: start: 20100609, end: 20100609
  2. TRAMADOL [Concomitant]
     Indication: PAIN
     Dosage: DOSE REPORTED AS DROPS, FREQUENCY REPORTED AS PRN
     Route: 048

REACTIONS (2)
  - COLORECTAL CANCER [None]
  - DISEASE PROGRESSION [None]
